FAERS Safety Report 15367649 (Version 1)
Quarter: 2018Q3

REPORT INFORMATION
  Report Type: Spontaneous
  Country: US (occurrence: US)
  Receive Date: 20180904
  Receipt Date: 20180904
  Transmission Date: 20181010
  Serious: Yes (Disabling, Other)
  Sender: FDA-Public Use
  Company Number: None

PATIENT
  Age: 68 Year
  Sex: Male
  Weight: 90 kg

DRUGS (8)
  1. OXYBUTYNIN CL [Concomitant]
     Active Substance: OXYBUTYNIN CHLORIDE
  2. CALCIUM [Concomitant]
     Active Substance: CALCIUM
  3. ATENOLOL. [Suspect]
     Active Substance: ATENOLOL
  4. UBIQUINOL [Concomitant]
     Active Substance: UBIQUINOL
  5. ASPIRIN. [Concomitant]
     Active Substance: ASPIRIN
  6. VALSARTAN. [Suspect]
     Active Substance: VALSARTAN
     Indication: HYPERTENSION
     Dosage: ?          QUANTITY:1 TABLET(S);?
     Route: 048
     Dates: start: 20171215, end: 20180808
  7. LOSARTAN POTASSIUM. [Concomitant]
     Active Substance: LOSARTAN POTASSIUM
  8. ATORVASTATIN [Concomitant]
     Active Substance: ATORVASTATIN

REACTIONS (2)
  - Bladder transitional cell carcinoma stage II [None]
  - Prostate cancer [None]

NARRATIVE: CASE EVENT DATE: 20180420
